FAERS Safety Report 11654347 (Version 1)
Quarter: 2015Q4

REPORT INFORMATION
  Report Type: Spontaneous
  Country: IL (occurrence: IL)
  Receive Date: 20151023
  Receipt Date: 20151023
  Transmission Date: 20160304
  Serious: Yes (Death)
  Sender: FDA-Public Use
  Company Number: IL-ASTRAZENECA-2015SF01128

PATIENT
  Sex: Female

DRUGS (9)
  1. GLUCOPHAGE [Concomitant]
     Active Substance: METFORMIN HYDROCHLORIDE
  2. BYDUREON [Suspect]
     Active Substance: EXENATIDE
     Route: 065
  3. SEROTIDE [Concomitant]
  4. SIMOVIL [Concomitant]
  5. INSULIN [Concomitant]
     Active Substance: INSULIN NOS
  6. AMLODIPINE [Concomitant]
     Active Substance: AMLODIPINE BESYLATE
  7. FUSID [Concomitant]
     Active Substance: FUROSEMIDE
  8. MICROPIRIN [Concomitant]
     Active Substance: ASPIRIN
  9. ENALAPRIL [Concomitant]
     Active Substance: ENALAPRIL

REACTIONS (2)
  - Dyspnoea [Unknown]
  - Death [Fatal]
